FAERS Safety Report 23915599 (Version 3)
Quarter: 2024Q2

REPORT INFORMATION
  Report Type: Spontaneous
  Country: US (occurrence: US)
  Receive Date: 20240529
  Receipt Date: 20240604
  Transmission Date: 20240716
  Serious: Yes (Hospitalization, Other)
  Sender: FDA-Public Use
  Company Number: US-MLMSERVICE-20240516-PI066058-00270-1

PATIENT
  Age: 7 Decade
  Sex: Female

DRUGS (2)
  1. MEDROL [Suspect]
     Active Substance: METHYLPREDNISOLONE
     Indication: Back pain
     Dosage: TAPERED FROM 24 MG TO 4MG DAILY OVER 6 DAYS
     Route: 048
  2. MEDROL [Suspect]
     Active Substance: METHYLPREDNISOLONE
     Dosage: TAPERED FROM 24 MG TO 4MG DAILY OVER 6 DAYS
     Route: 048

REACTIONS (2)
  - Hyperammonaemic encephalopathy [Recovered/Resolved]
  - Off label use [Unknown]
